FAERS Safety Report 5708259-5 (Version None)
Quarter: 2008Q2

REPORT INFORMATION
  Report Type: 
  Country: None (occurrence: None)
  Receive Date: 20080417
  Receipt Date: 20080409
  Transmission Date: 20081010
  Serious: Yes (Other)
  Sender: FDA-Public Use
  Company Number: NL-TEVA-169830ISR

PATIENT
  Age: 30 Year
  Sex: Female

DRUGS (4)
  1. PREDNISOLONE [Suspect]
     Indication: LIVER TRANSPLANT
  2. AZATHIOPRINE [Suspect]
     Indication: LIVER TRANSPLANT
  3. TACROLIMUS [Suspect]
     Indication: LIVER TRANSPLANT
  4. CYCLOSPORINE [Suspect]
     Indication: LIVER TRANSPLANT

REACTIONS (3)
  - COLITIS ULCERATIVE [None]
  - HEPATIC CIRRHOSIS [None]
  - HEPATITIS E [None]
